FAERS Safety Report 11656383 (Version 1)
Quarter: 2015Q4

REPORT INFORMATION
  Report Type: Spontaneous
  Country: IT (occurrence: IT)
  Receive Date: 20151024
  Receipt Date: 20151024
  Transmission Date: 20160304
  Serious: Yes (Other)
  Sender: FDA-Public Use
  Company Number: IT-ACCORD-034599

PATIENT
  Age: 70 Year
  Sex: Female

DRUGS (3)
  1. FLUOROURACIL. [Suspect]
     Active Substance: FLUOROURACIL
     Indication: COLON CANCER
     Dates: start: 20121212, end: 20130506
  2. AVASTIN [Suspect]
     Active Substance: BEVACIZUMAB
     Indication: COLON CANCER
     Route: 042
     Dates: start: 20121212, end: 20130419
  3. OXALIPLATIN. [Suspect]
     Active Substance: OXALIPLATIN
     Indication: COLON CANCER
     Dates: start: 20121212, end: 20130506

REACTIONS (1)
  - Enterocutaneous fistula [Recovering/Resolving]

NARRATIVE: CASE EVENT DATE: 20130420
